FAERS Safety Report 5087991-3 (Version None)
Quarter: 2006Q3

REPORT INFORMATION
  Report Type: 
  Country: None (occurrence: None)
  Receive Date: 20060821
  Receipt Date: 20060812
  Transmission Date: 20061208
  Serious: Yes (Other)
  Sender: FDA-Public Use
  Company Number: 2006098330

PATIENT
  Age: 14 Year
  Sex: Male

DRUGS (1)
  1. NATURAL CITRS LISTERINE (MENTHOL, METHYL SALICYLATE, EUCALYPTOL, THYMO [Suspect]
     Indication: FEELING DRUNK
     Dosage: 5 SHOTS ONCE, ORAL
     Route: 048
     Dates: start: 20060812, end: 20060812

REACTIONS (3)
  - FEELING DRUNK [None]
  - INCORRECT ROUTE OF DRUG ADMINISTRATION [None]
  - INTENTIONAL DRUG MISUSE [None]
